FAERS Safety Report 15918893 (Version 1)
Quarter: 2019Q1

REPORT INFORMATION
  Report Type: Report from Study
  Country: AU (occurrence: AU)
  Receive Date: 20190205
  Receipt Date: 20190205
  Transmission Date: 20190417
  Serious: Yes (Disabling)
  Sender: FDA-Public Use
  Company Number: AU-MYLANLABS-2019M1009332

PATIENT
  Sex: Male

DRUGS (5)
  1. MYLAN-EMTRICITABINE/TENOFOVIR DISOPROXIL [Suspect]
     Active Substance: EMTRICITABINE\TENOFOVIR DISOPROXIL
     Dosage: UNK
     Dates: start: 20180702
  2. MYLAN-EMTRICITABINE/TENOFOVIR DISOPROXIL [Suspect]
     Active Substance: EMTRICITABINE\TENOFOVIR DISOPROXIL
     Indication: PRODUCT USED FOR UNKNOWN INDICATION
     Dosage: UNK UNK, QD
     Route: 048
     Dates: start: 20170911, end: 20180828
  3. MYLAN-EMTRICITABINE/TENOFOVIR DISOPROXIL [Suspect]
     Active Substance: EMTRICITABINE\TENOFOVIR DISOPROXIL
     Dosage: UNK
  4. MYLAN-EMTRICITABINE/TENOFOVIR DISOPROXIL [Suspect]
     Active Substance: EMTRICITABINE\TENOFOVIR DISOPROXIL
     Dosage: UNK
     Dates: start: 20180702
  5. MYLAN-EMTRICITABINE/TENOFOVIR DISOPROXIL [Suspect]
     Active Substance: EMTRICITABINE\TENOFOVIR DISOPROXIL
     Dosage: UNK

REACTIONS (1)
  - HIV infection [Unknown]
